FAERS Safety Report 5545191-4 (Version None)
Quarter: 2007Q4

REPORT INFORMATION
  Report Type: 
  Country: None (occurrence: None)
  Receive Date: 20071210
  Receipt Date: 20070116
  Transmission Date: 20080405
  Serious: No
  Sender: FDA-Public Use
  Company Number: US-AMGEN-KDL207065

PATIENT
  Sex: Female

DRUGS (2)
  1. ENBREL [Suspect]
     Indication: PSORIATIC ARTHROPATHY
     Route: 058
     Dates: start: 20060111, end: 20061001
  2. REMICADE [Concomitant]
     Route: 042
     Dates: start: 20061001

REACTIONS (3)
  - EYE INFLAMMATION [None]
  - NODULE [None]
  - PSORIATIC ARTHROPATHY [None]
